FAERS Safety Report 6439978-3 (Version None)
Quarter: 2009Q4

REPORT INFORMATION
  Report Type: 
  Country: None (occurrence: None)
  Receive Date: 20091110
  Receipt Date: 20091026
  Transmission Date: 20100525
  Serious: Yes (Death, Hospitalization)
  Sender: FDA-Public Use
  Company Number: 2009AC000079

PATIENT
  Age: 29 Year
  Sex: Female
  Weight: 125 kg

DRUGS (22)
  1. DIGOXIN [Suspect]
     Dosage: 0.125 MG;QD;PO 0.25 MG;QD;PO
     Route: 048
  2. LASIX [Concomitant]
  3. K-DUR [Concomitant]
  4. SPIRONOLACTONE [Concomitant]
  5. TEQUIN [Concomitant]
  6. ROBITUSSIN [Concomitant]
  7. COREG [Concomitant]
  8. ZAROXOLYN [Concomitant]
  9. LIPITOR [Concomitant]
  10. METOPROLOL [Concomitant]
  11. LISINOPRIL [Concomitant]
  12. KAY CIEL DURA-TABS [Concomitant]
  13. PRINIVIL [Concomitant]
  14. CARVEDILOL [Concomitant]
  15. METOLAZONE [Concomitant]
  16. POTASSIUM CHLORIDE [Concomitant]
  17. ZOLPIDEM [Concomitant]
  18. DIPYRIDAMOLE [Concomitant]
  19. MAG OXIDE [Concomitant]
  20. PROPA-N/APAP [Concomitant]
  21. RAMIPRIL [Concomitant]
  22. COUMADIN [Concomitant]

REACTIONS (28)
  - ATRIAL FIBRILLATION [None]
  - BACK PAIN [None]
  - BLOOD CHOLESTEROL INCREASED [None]
  - BLOOD GLUCOSE INCREASED [None]
  - BRONCHITIS [None]
  - CARDIAC FAILURE CONGESTIVE [None]
  - CARDIOMYOPATHY [None]
  - CHOLECYSTITIS [None]
  - CLAUSTROPHOBIA [None]
  - CONDITION AGGRAVATED [None]
  - HAIR GROWTH ABNORMAL [None]
  - HYPERTENSION [None]
  - INFERTILITY [None]
  - INFLUENZA LIKE ILLNESS [None]
  - INJURY [None]
  - LOBAR PNEUMONIA [None]
  - MASS [None]
  - MENSTRUATION IRREGULAR [None]
  - OBESITY [None]
  - POLYCYSTIC OVARIES [None]
  - PRESYNCOPE [None]
  - RENAL CANCER [None]
  - SLEEP APNOEA SYNDROME [None]
  - TUBERCULIN TEST POSITIVE [None]
  - URINARY INCONTINENCE [None]
  - URINARY TRACT INFECTION [None]
  - UTERINE CANCER [None]
  - WOUND INFECTION [None]
